FAERS Safety Report 6339805-9 (Version None)
Quarter: 2009Q3

REPORT INFORMATION
  Report Type: 
  Country: None (occurrence: None)
  Receive Date: 20090903
  Receipt Date: 20090828
  Transmission Date: 20100115
  Serious: Yes (Other)
  Sender: FDA-Public Use
  Company Number: PHEH2009US10076

PATIENT
  Sex: Female

DRUGS (1)
  1. RECLAST [Suspect]
     Dosage: UNK
     Dates: start: 20090827

REACTIONS (1)
  - BLOOD URINE PRESENT [None]
